FAERS Safety Report 5027342-3 (Version None)
Quarter: 2006Q2

REPORT INFORMATION
  Report Type: 
  Country: None (occurrence: None)
  Receive Date: 20060612
  Receipt Date: 20060530
  Transmission Date: 20061013
  Serious: Yes (Hospitalization)
  Sender: FDA-Public Use
  Company Number: US017717

PATIENT
  Age: 70 Year
  Sex: Female

DRUGS (4)
  1. TRISENOX [Suspect]
     Indication: MYELOPROLIFERATIVE DISORDER
     Dosage: 18 MG Q72HR INTRAVENOUS DRIP
     Route: 041
     Dates: start: 20060220
  2. THALIDOMIDE [Concomitant]
  3. DEXAMETHASONE TAB [Concomitant]
  4. ASCORBIC ACID [Concomitant]

REACTIONS (4)
  - CARDIAC TAMPONADE [None]
  - PERICARDIAL EFFUSION [None]
  - PLEURAL EFFUSION [None]
  - PNEUMONIA [None]
